FAERS Safety Report 12772848 (Version 1)
Quarter: 2016Q3

REPORT INFORMATION
  Report Type: Spontaneous
  Country: TH (occurrence: TH)
  Receive Date: 20160922
  Receipt Date: 20160922
  Transmission Date: 20161109
  Serious: Yes (Other)
  Sender: FDA-Public Use
  Company Number: TH-PFIZER INC-2016415567

PATIENT
  Age: 70 Year
  Sex: Female

DRUGS (2)
  1. SUTENT [Suspect]
     Active Substance: SUNITINIB MALATE
     Dosage: 1 TABLET, 2X/DAY, CYCLIC (2 WEEKS ON / 1 WEEK OFF)
     Dates: start: 2015
  2. SUTENT [Suspect]
     Active Substance: SUNITINIB MALATE
     Indication: METASTATIC RENAL CELL CARCINOMA
     Dosage: 3 TABLET, 1X/DAY, CYCLIC (2 WEEKS ON / 1 WEEK OFF)
     Route: 048
     Dates: start: 2015

REACTIONS (4)
  - Leukopenia [Recovering/Resolving]
  - Cytopenia [Recovering/Resolving]
  - Rash [Recovered/Resolved]
  - Thrombocytopenia [Recovering/Resolving]
